FAERS Safety Report 6061478-3 (Version None)
Quarter: 2009Q1

REPORT INFORMATION
  Report Type: 
  Country: None (occurrence: None)
  Receive Date: 20090129
  Receipt Date: 20090129
  Transmission Date: 20090719
  Serious: No
  Sender: FDA-Public Use
  Company Number: None

PATIENT
  Sex: Male
  Weight: 115.2136 kg

DRUGS (1)
  1. TETRACYCLINE [Suspect]
     Indication: ACNE
     Dosage: 2 CAPSULES EVERY NIGHT PO
     Route: 048
     Dates: start: 20090109, end: 20090126

REACTIONS (2)
  - DIZZINESS [None]
  - HEADACHE [None]
